FAERS Safety Report 7358634-0 (Version None)
Quarter: 2011Q1

REPORT INFORMATION
  Report Type: 
  Country: None (occurrence: None)
  Receive Date: 20110317
  Receipt Date: 20110311
  Transmission Date: 20110831
  Serious: Yes (Hospitalization, Other)
  Sender: FDA-Public Use
  Company Number: CA-ELI_LILLY_AND_COMPANY-CA201103003740

PATIENT
  Sex: Male
  Weight: 97.3 kg

DRUGS (18)
  1. ZYPREXA [Suspect]
     Dosage: 10 MG, 2/D
     Route: 048
  2. VASOTEC /00935901/ [Concomitant]
     Dosage: 20 MG, EACH MORNING
     Route: 048
  3. ZYPREXA [Suspect]
     Dosage: 30 MG, DAILY (1/D)
     Route: 048
  4. ZYPREXA [Suspect]
     Dosage: 20 MG, EACH EVENING
  5. PAROXETINE [Concomitant]
     Dosage: 20 MG, UNK
     Route: 048
  6. VASOTEC /00935901/ [Concomitant]
     Dosage: 10 MG, EACH EVENING
     Route: 048
  7. VALPROIC ACID [Concomitant]
     Dosage: 1000 MG, 2/D
     Route: 048
  8. ACEBUTOLOL [Concomitant]
     Dosage: 600 MG, 2/D
     Route: 048
  9. ASPIRIN [Concomitant]
     Dosage: 81 MG, DAILY (1/D)
     Route: 048
  10. ZYPREXA [Suspect]
     Dosage: 5 MG, DAILY (1/D)
     Route: 048
  11. ZYPREXA ZYDIS [Suspect]
     Dosage: 10 MG, EACH EVENING
  12. HYDRODIURIL [Concomitant]
  13. LITHIUM CARBONATE [Concomitant]
     Dosage: 300 MG, 4/D
     Route: 048
  14. COGENTIN [Concomitant]
  15. MELLARIL [Concomitant]
  16. ZYPREXA [Suspect]
     Indication: SCHIZOPHRENIA, PARANOID TYPE
     Dosage: 15 MG, EACH EVENING
     Route: 048
  17. ALTACE [Concomitant]
     Dosage: 10 MG, DAILY (1/D)
     Route: 048
  18. ZYPREXA ZYDIS [Suspect]
     Dosage: 5 MG, DAILY (1/D)

REACTIONS (11)
  - HYPERLIPIDAEMIA [None]
  - ERECTILE DYSFUNCTION [None]
  - HAEMATEMESIS [None]
  - PANCREATITIS [None]
  - TYPE 2 DIABETES MELLITUS [None]
  - OVERDOSE [None]
  - MYOCARDIAL ISCHAEMIA [None]
  - HYPERTENSION [None]
  - ALANINE AMINOTRANSFERASE INCREASED [None]
  - GAMMA-GLUTAMYLTRANSFERASE INCREASED [None]
  - WEIGHT INCREASED [None]
